FAERS Safety Report 6317071-8 (Version None)
Quarter: 2009Q3

REPORT INFORMATION
  Report Type: 
  Country: None (occurrence: None)
  Receive Date: 20090820
  Receipt Date: 20090811
  Transmission Date: 20100115
  Serious: Yes (Death)
  Sender: FDA-Public Use
  Company Number: JP-PFIZER INC-2009253147

PATIENT
  Age: 68 Year

DRUGS (5)
  1. ADRIACIN [Suspect]
     Indication: DIFFUSE LARGE B-CELL LYMPHOMA
     Route: 042
  2. PREDNISOLONE AND PREDNISOLONE STEAGLATE [Suspect]
     Indication: DIFFUSE LARGE B-CELL LYMPHOMA
     Route: 048
  3. ENDOXAN [Suspect]
     Indication: DIFFUSE LARGE B-CELL LYMPHOMA
     Route: 042
  4. ONCOVIN [Suspect]
     Indication: DIFFUSE LARGE B-CELL LYMPHOMA
     Route: 042
  5. RITUXAN [Suspect]
     Indication: DIFFUSE LARGE B-CELL LYMPHOMA
     Route: 042

REACTIONS (1)
  - MYELODYSPLASTIC SYNDROME [None]
